FAERS Safety Report 11521908 (Version 2)
Quarter: 2015Q3

REPORT INFORMATION
  Report Type: Spontaneous
  Country: FR (occurrence: FR)
  Receive Date: 20150918
  Receipt Date: 20150928
  Transmission Date: 20151125
  Serious: Yes (Life-Threatening, Hospitalization, Other)
  Sender: FDA-Public Use
  Company Number: FR-PFIZER INC-2015311876

PATIENT
  Age: 53 Year
  Sex: Male

DRUGS (7)
  1. DIPRIVAN [Suspect]
     Active Substance: PROPOFOL
     Dosage: UNK
     Route: 042
     Dates: start: 20141223, end: 20141223
  2. SUFENTANIL [Suspect]
     Active Substance: SUFENTANIL
     Dosage: UNK
     Dates: start: 20141223, end: 20141223
  3. ATENOLOL. [Suspect]
     Active Substance: ATENOLOL
     Dosage: UNK
  4. HYPNOVEL [Suspect]
     Active Substance: MIDAZOLAM\MIDAZOLAM HYDROCHLORIDE
     Dosage: UNK
     Dates: start: 20141223, end: 20141223
  5. INEXIUM [Concomitant]
     Active Substance: ESOMEPRAZOLE
     Dosage: UNK
  6. ESMERON [Suspect]
     Active Substance: ROCURONIUM BROMIDE
     Dosage: UNK
     Dates: start: 20141223, end: 20141223
  7. SEROPLEX [Suspect]
     Active Substance: ESCITALOPRAM OXALATE
     Dosage: UNK
     Route: 065

REACTIONS (4)
  - Lung disorder [Unknown]
  - Anaphylactic shock [Recovered/Resolved]
  - Lymphadenopathy mediastinal [Unknown]
  - Hilar lymphadenopathy [Unknown]

NARRATIVE: CASE EVENT DATE: 20141223
